FAERS Safety Report 6145293-8 (Version None)
Quarter: 2009Q2

REPORT INFORMATION
  Report Type: 
  Country: None (occurrence: None)
  Receive Date: 20090401
  Receipt Date: 20090401
  Transmission Date: 20091009
  Serious: Yes (Hospitalization)
  Sender: FDA-Public Use
  Company Number: None

PATIENT
  Age: 57 Year
  Sex: Male

DRUGS (11)
  1. WARFARIN SODIUM [Suspect]
     Indication: SUPERIOR VENA CAVAL OCCLUSION
     Dosage: 5MG DAILY PO CHRONIC
     Route: 048
  2. DIFLUCAN [Concomitant]
  3. FENTANYL [Concomitant]
  4. REGLAN [Concomitant]
  5. PROTONIX [Concomitant]
  6. WARFARIN SODIUM [Concomitant]
  7. MAGIC MOUTHWASH [Concomitant]
  8. SUCRALFATE [Concomitant]
  9. POTASSIUM CHLORIDE [Concomitant]
  10. COMPAZINE [Concomitant]
  11. KYTRIL [Concomitant]

REACTIONS (6)
  - DISEASE PROGRESSION [None]
  - GASTROINTESTINAL HAEMORRHAGE [None]
  - HAEMATEMESIS [None]
  - HEPATIC FUNCTION ABNORMAL [None]
  - INTERNATIONAL NORMALISED RATIO INCREASED [None]
  - LIVER DISORDER [None]
